FAERS Safety Report 18105059 (Version 1)
Quarter: 2020Q3

REPORT INFORMATION
  Report Type: Spontaneous
  Country: US (occurrence: US)
  Receive Date: 20200804
  Receipt Date: 20200804
  Transmission Date: 20201103
  Serious: No
  Sender: FDA-Public Use
  Company Number: US-009507513-2007USA002876

PATIENT
  Age: 4 Year
  Sex: Male

DRUGS (3)
  1. AMPHOTERICIN B (+) CHOLESTEROL (+) DISTEAROYLPHOSPHATIDYLGLYCEROL (+) [Concomitant]
     Active Substance: AMPHOTERICIN B\CHOLESTEROL
     Indication: DISSEMINATED COCCIDIOIDOMYCOSIS
     Dosage: 7.5 MILLIGRAM/KILOGRAM
  2. SERTRALINE HYDROCHLORIDE. [Concomitant]
     Active Substance: SERTRALINE HYDROCHLORIDE
     Indication: DISSEMINATED COCCIDIOIDOMYCOSIS
     Dosage: UNK
  3. NOXAFIL [Suspect]
     Active Substance: POSACONAZOLE
     Indication: DISSEMINATED COCCIDIOIDOMYCOSIS
     Dosage: UNK

REACTIONS (1)
  - Product administered to patient of inappropriate age [Unknown]
